FAERS Safety Report 9157834 (Version 1)
Quarter: 2013Q1

REPORT INFORMATION
  Report Type: Spontaneous
  Country: NL (occurrence: NL)
  Receive Date: 20130312
  Receipt Date: 20130312
  Transmission Date: 20140127
  Serious: Yes (Disabling)
  Sender: FDA-Public Use
  Company Number: NL-009507513-1303NLD003460

PATIENT
  Age: 34 Year
  Sex: Male

DRUGS (5)
  1. NASONEX [Suspect]
     Dosage: 2 PUFFS IN EACH NOSTRIL, QD
     Route: 045
     Dates: start: 201301, end: 20130301
  2. LITHIUM [Concomitant]
     Dosage: UNK
     Dates: start: 2007
  3. LAMOTRIGINE [Concomitant]
  4. SEROQUEL XR [Concomitant]
  5. RISPERDAL [Concomitant]
     Dosage: UNK
     Dates: start: 2010

REACTIONS (4)
  - Vision blurred [Not Recovered/Not Resolved]
  - Vision blurred [Not Recovered/Not Resolved]
  - Visual impairment [Not Recovered/Not Resolved]
  - Vision blurred [Not Recovered/Not Resolved]
